FAERS Safety Report 7367354-8 (Version None)
Quarter: 2011Q1

REPORT INFORMATION
  Report Type: 
  Country: None (occurrence: None)
  Receive Date: 20110322
  Receipt Date: 20110317
  Transmission Date: 20110831
  Serious: Yes (Other)
  Sender: FDA-Public Use
  Company Number: US-PFIZER INC-2011059033

PATIENT
  Sex: Female
  Weight: 118 kg

DRUGS (4)
  1. CADUET [Suspect]
     Indication: BLOOD CHOLESTEROL INCREASED
     Dosage: AMLODIPINE BESILATE 10 MG/ATORVASTATIN CALCIUM 40 MG
     Route: 048
     Dates: start: 20080101
  2. ACETYLSALICYLIC ACID [Concomitant]
     Dosage: UNK
  3. HYZAAR [Concomitant]
     Indication: BLOOD PRESSURE ABNORMAL
     Dosage: 100/25
  4. HYDROCODONE [Concomitant]
     Indication: PAIN
     Dosage: 7.5 MG, UNK

REACTIONS (2)
  - ARTHROPATHY [None]
  - GLUCOSE TOLERANCE IMPAIRED [None]
